FAERS Safety Report 8119008-8 (Version None)
Quarter: 2012Q1

REPORT INFORMATION
  Report Type: 
  Country: None (occurrence: None)
  Receive Date: 20120207
  Receipt Date: 20120125
  Transmission Date: 20120608
  Serious: Yes (Hospitalization, Other)
  Sender: FDA-Public Use
  Company Number: US-ELI_LILLY_AND_COMPANY-US201112005166

PATIENT
  Sex: Female

DRUGS (9)
  1. METOPROLOL [Concomitant]
  2. FORTEO [Suspect]
     Indication: OSTEOPOROSIS
     Dosage: 20 UG, QD
     Route: 065
     Dates: start: 20111213
  3. FORTEO [Suspect]
     Dosage: 20 UG, QD
  4. WARFARIN SODIUM [Concomitant]
  5. HUMIRA [Concomitant]
     Dosage: UNK, OTHER
  6. FORTEO [Suspect]
     Dosage: 20 UG, QD
     Dates: end: 20120115
  7. NEXIUM [Concomitant]
  8. CLONIDINE [Concomitant]
  9. PREDNISONE TAB [Concomitant]

REACTIONS (10)
  - ASTHENIA [None]
  - ACCIDENTAL OVERDOSE [None]
  - TREMOR [None]
  - DEHYDRATION [None]
  - SYNCOPE [None]
  - DRUG DOSE OMISSION [None]
  - DIARRHOEA [None]
  - NASOPHARYNGITIS [None]
  - GASTROENTERITIS VIRAL [None]
  - VOMITING [None]
